FAERS Safety Report 23050294 (Version 1)
Quarter: 2023Q4

REPORT INFORMATION
  Report Type: Spontaneous
  Country: US (occurrence: US)
  Receive Date: 20231010
  Receipt Date: 20231010
  Transmission Date: 20240110
  Serious: Yes (Other)
  Sender: FDA-Public Use
  Company Number: US-INTRA-CELLULAR THERAPIES, INC.-2023ICT01353

PATIENT
  Sex: Female
  Weight: 77.098 kg

DRUGS (5)
  1. CAPLYTA [Suspect]
     Active Substance: LUMATEPERONE
     Indication: Bipolar disorder
     Dosage: 42 MG, 1X/DAY
     Route: 048
     Dates: start: 20230705, end: 2023
  2. CAPLYTA [Suspect]
     Active Substance: LUMATEPERONE
     Dosage: 42 MG EVERY OTHER DAY
     Route: 048
     Dates: start: 2023, end: 20230830
  3. CAPLYTA [Suspect]
     Active Substance: LUMATEPERONE
     Dosage: 42 MG, 1X/DAY
     Route: 048
     Dates: start: 20230919
  4. DULOXETINE [Concomitant]
     Active Substance: DULOXETINE
  5. CLONAZEPAM [Concomitant]
     Active Substance: CLONAZEPAM

REACTIONS (6)
  - Syncope [Recovering/Resolving]
  - Contusion [Recovering/Resolving]
  - Lip injury [Recovering/Resolving]
  - Intentional product misuse [Not Recovered/Not Resolved]
  - Dizziness [Recovering/Resolving]
  - Fall [Recovering/Resolving]

NARRATIVE: CASE EVENT DATE: 20230101
